FAERS Safety Report 4999813-7 (Version None)
Quarter: 2006Q2

REPORT INFORMATION
  Report Type: 
  Country: None (occurrence: None)
  Receive Date: 20060511
  Receipt Date: 20050520
  Transmission Date: 20061013
  Serious: Yes (Hospitalization)
  Sender: FDA-Public Use
  Company Number: FR-SANOFI-SYNTHELABO-A02200501351

PATIENT
  Age: 84 Year
  Sex: Male

DRUGS (6)
  1. STILNOX [Suspect]
     Indication: DRUG USE FOR UNKNOWN INDICATION
     Route: 048
     Dates: end: 20050402
  2. GLUCOPHAGE [Suspect]
     Indication: DRUG USE FOR UNKNOWN INDICATION
     Route: 048
     Dates: end: 20050401
  3. PREVISCAN [Suspect]
     Indication: DRUG USE FOR UNKNOWN INDICATION
     Route: 048
     Dates: end: 20050401
  4. ZOPHREN [Suspect]
     Indication: DRUG USE FOR UNKNOWN INDICATION
     Route: 048
     Dates: start: 20050402, end: 20050402
  5. XELODA [Suspect]
     Indication: COLON CANCER
     Dosage: 6 DF
     Route: 048
     Dates: start: 20050223, end: 20050308
  6. XELODA [Suspect]
     Dosage: 6 DF
     Route: 048
     Dates: start: 20050313, end: 20050329

REACTIONS (3)
  - PALMAR-PLANTAR ERYTHRODYSAESTHESIA SYNDROME [None]
  - TOXIC EPIDERMAL NECROLYSIS [None]
  - VOMITING [None]
